FAERS Safety Report 13274234 (Version 1)
Quarter: 2017Q1

REPORT INFORMATION
  Report Type: Spontaneous
  Country: US (occurrence: US)
  Receive Date: 20170227
  Receipt Date: 20170227
  Transmission Date: 20170428
  Serious: No
  Sender: FDA-Public Use
  Company Number: US-ELI_LILLY_AND_COMPANY-US201702009829

PATIENT
  Sex: Female

DRUGS (14)
  1. HUMALOG [Suspect]
     Active Substance: INSULIN LISPRO
     Dosage: 4 U, EACH EVENING
  2. VESICARE [Concomitant]
     Active Substance: SOLIFENACIN SUCCINATE
  3. GABAPENTIN. [Concomitant]
     Active Substance: GABAPENTIN
  4. BUSPIRONE [Concomitant]
     Active Substance: BUSPIRONE HYDROCHLORIDE
  5. HUMALOG [Suspect]
     Active Substance: INSULIN LISPRO
     Indication: TYPE 2 DIABETES MELLITUS
     Dosage: 6 U, BID
  6. DOXEPIN [Concomitant]
     Active Substance: DOXEPIN
  7. LANTUS [Concomitant]
     Active Substance: INSULIN GLARGINE
  8. LOSARTAN. [Concomitant]
     Active Substance: LOSARTAN
  9. SIMVASTATIN. [Concomitant]
     Active Substance: SIMVASTATIN
  10. LORAZEPAM. [Concomitant]
     Active Substance: LORAZEPAM
  11. CAVEDOL [Concomitant]
  12. OMEPRAZOLE. [Concomitant]
     Active Substance: OMEPRAZOLE
  13. CHLORTHALIDONE. [Concomitant]
     Active Substance: CHLORTHALIDONE
  14. LEVOCETIRIZIN [Concomitant]
     Active Substance: LEVOCETIRIZINE DIHYDROCHLORIDE

REACTIONS (6)
  - Cystitis [Unknown]
  - Hypersensitivity [Unknown]
  - Visual acuity reduced [Unknown]
  - Diabetic neuropathy [Unknown]
  - Nausea [Unknown]
  - Injection site pain [Unknown]
